FAERS Safety Report 24992021 (Version 3)
Quarter: 2025Q3

REPORT INFORMATION
  Report Type: Report from Study
  Country: JP (occurrence: JP)
  Receive Date: 20250220
  Receipt Date: 20250709
  Transmission Date: 20251020
  Serious: Yes (Death)
  Sender: SHIONOGI
  Company Number: JP-shionogi-202500001979

PATIENT
  Age: 55 Year
  Sex: Male
  Weight: 57 kg

DRUGS (18)
  1. CEFIDEROCOL [Suspect]
     Active Substance: CEFIDEROCOL
     Indication: Haematological infection
     Route: 041
     Dates: start: 20240917, end: 20241007
  2. CEFIDEROCOL [Suspect]
     Active Substance: CEFIDEROCOL
     Indication: Enterobacter infection
  3. ZERBAXA [Concomitant]
     Active Substance: CEFTOLOZANE SULFATE\TAZOBACTAM SODIUM
     Indication: Haematological infection
     Route: 065
     Dates: start: 20240901, end: 20240917
  4. ZERBAXA [Concomitant]
     Active Substance: CEFTOLOZANE SULFATE\TAZOBACTAM SODIUM
     Indication: Enterobacter infection
  5. TOBRACIN ELI LILLY [TOBRAMYCIN] [Concomitant]
     Indication: Haematological infection
     Route: 065
     Dates: start: 20240901, end: 20240916
  6. TOBRACIN ELI LILLY [TOBRAMYCIN] [Concomitant]
     Indication: Enterobacter infection
  7. VANCOMYCIN [Concomitant]
     Active Substance: VANCOMYCIN
     Indication: Haematological infection
     Route: 065
     Dates: start: 20240830
  8. VANCOMYCIN [Concomitant]
     Active Substance: VANCOMYCIN
     Indication: Enterobacter infection
  9. ACETAMINOPHEN [Concomitant]
     Active Substance: ACETAMINOPHEN
     Indication: Product used for unknown indication
     Route: 065
  10. POLARAMINE [Concomitant]
     Active Substance: DEXCHLORPHENIRAMINE MALEATE
     Indication: Product used for unknown indication
     Route: 065
     Dates: start: 20241008
  11. ATARAX-P [HYDROXYZINE HYDROCHLORIDE] [Concomitant]
     Indication: Product used for unknown indication
     Route: 065
     Dates: start: 20241008
  12. FOSCAVIR [Concomitant]
     Active Substance: FOSCARNET SODIUM
     Indication: Product used for unknown indication
     Route: 065
     Dates: end: 20241007
  13. NOREPINEPHRINE BITARTRATE [Concomitant]
     Active Substance: NOREPINEPHRINE BITARTRATE
     Indication: Product used for unknown indication
     Route: 065
     Dates: start: 20241001, end: 20241017
  14. LASIX [Concomitant]
     Active Substance: FUROSEMIDE
     Indication: Product used for unknown indication
     Route: 065
     Dates: start: 20241001
  15. CALCIUM GLUCONATE [Concomitant]
     Active Substance: CALCIUM GLUCONATE
     Indication: Product used for unknown indication
     Route: 065
     Dates: start: 20241004, end: 20241012
  16. LEVETIRACETAM [Concomitant]
     Active Substance: LEVETIRACETAM
     Indication: Product used for unknown indication
     Route: 048
  17. VALACYCLOVIR HYDROCHLORIDE [Concomitant]
     Active Substance: VALACYCLOVIR HYDROCHLORIDE
     Indication: Product used for unknown indication
     Route: 048
     Dates: end: 20240923
  18. NEXIUM [Concomitant]
     Active Substance: ESOMEPRAZOLE MAGNESIUM
     Indication: Prophylaxis
     Route: 048

REACTIONS (2)
  - Fournier^s gangrene [Fatal]
  - Drug resistance [Unknown]

NARRATIVE: CASE EVENT DATE: 20241024
